FAERS Safety Report 12631164 (Version 2)
Quarter: 2016Q3

REPORT INFORMATION
  Report Type: Spontaneous
  Country: US (occurrence: US)
  Receive Date: 20160808
  Receipt Date: 20160808
  Transmission Date: 20161109
  Serious: No
  Sender: FDA-Public Use
  Company Number: US-BEH-2015052535

PATIENT
  Sex: Female
  Weight: 83 kg

DRUGS (36)
  1. HIZENTRA [Suspect]
     Active Substance: HUMAN IMMUNOGLOBULIN G
     Indication: IMMUNODEFICIENCY COMMON VARIABLE
     Dosage: 4 G 20 ML VIAL
     Route: 058
  2. MUPIROCIN. [Concomitant]
     Active Substance: MUPIROCIN
  3. TURMERIC [Concomitant]
     Active Substance: TURMERIC
  4. ACETAMINOPHEN. [Concomitant]
     Active Substance: ACETAMINOPHEN
  5. LIDOCAINE/PRILOCAINE [Concomitant]
     Active Substance: LIDOCAINE\PRILOCAINE
  6. CLOBETASOL [Concomitant]
     Active Substance: CLOBETASOL
  7. TRETINOIN. [Concomitant]
     Active Substance: TRETINOIN
  8. PROAIR HFA [Concomitant]
     Active Substance: ALBUTEROL SULFATE
  9. SPIRIVA [Concomitant]
     Active Substance: TIOTROPIUM BROMIDE MONOHYDRATE
  10. EPIPEN [Concomitant]
     Active Substance: EPINEPHRINE
     Indication: ANAPHYLACTIC REACTION
  11. ZOCOR [Concomitant]
     Active Substance: SIMVASTATIN
  12. CYMBALTA [Concomitant]
     Active Substance: DULOXETINE HYDROCHLORIDE
  13. CRESTOR [Concomitant]
     Active Substance: ROSUVASTATIN CALCIUM
  14. HYDROCODON-ACETAMIOPHEN [Concomitant]
  15. ADVIL [Concomitant]
     Active Substance: IBUPROFEN
  16. DIPHENHYDRAMINE. [Concomitant]
     Active Substance: DIPHENHYDRAMINE
  17. COLCRY [Concomitant]
  18. VOLTAREN [Concomitant]
     Active Substance: DICLOFENAC SODIUM
  19. GABAPENTIN. [Concomitant]
     Active Substance: GABAPENTIN
  20. DIAZEPAM. [Concomitant]
     Active Substance: DIAZEPAM
  21. ACIDOPHILUS [Concomitant]
     Active Substance: LACTOBACILLUS ACIDOPHILUS
  22. HIZENTRA [Suspect]
     Active Substance: HUMAN IMMUNOGLOBULIN G
     Indication: HYPER IGM SYNDROME
     Dosage: 2 GM 10 ML VIAL
     Route: 058
  23. KEFLEX [Concomitant]
     Active Substance: CEPHALEXIN
  24. SYNTHROID [Concomitant]
     Active Substance: LEVOTHYROXINE SODIUM
  25. VITAMIN D3 [Concomitant]
     Active Substance: CHOLECALCIFEROL
  26. AZITHROMYCIN ANHYDROUS. [Concomitant]
     Active Substance: AZITHROMYCIN ANHYDROUS
  27. ZETIA [Concomitant]
     Active Substance: EZETIMIBE
  28. POTASSIUM CITRATE. [Concomitant]
     Active Substance: POTASSIUM CITRATE
  29. AMBIEN [Concomitant]
     Active Substance: ZOLPIDEM TARTRATE
  30. ESTER-C [Concomitant]
     Active Substance: CALCIUM\VITAMINS
  31. FISH OIL [Concomitant]
     Active Substance: FISH OIL
  32. TRAZODONE [Concomitant]
     Active Substance: TRAZODONE HYDROCHLORIDE
  33. FLONASE [Concomitant]
     Active Substance: FLUTICASONE PROPIONATE
  34. TOPIRAMATE. [Concomitant]
     Active Substance: TOPIRAMATE
  35. LEXAPRO [Concomitant]
     Active Substance: ESCITALOPRAM OXALATE
  36. SINGULAIR [Concomitant]
     Active Substance: MONTELUKAST SODIUM

REACTIONS (2)
  - Infusion site nodule [Unknown]
  - Infusion site bruising [Unknown]
